FAERS Safety Report 4812116-6 (Version None)
Quarter: 2005Q4

REPORT INFORMATION
  Report Type: 
  Country: None (occurrence: None)
  Receive Date: 20051028
  Receipt Date: 20040225
  Transmission Date: 20060501
  Serious: No
  Sender: FDA-Public Use
  Company Number: US-GLAXOSMITHKLINE-A0499867A

PATIENT
  Age: 54 Year
  Sex: Female
  Weight: 95.5 kg

DRUGS (2)
  1. ADVAIR DISKUS 100/50 [Suspect]
     Indication: ASTHMA
     Dosage: 500MCG TWICE PER DAY
     Route: 055
     Dates: start: 20030901
  2. ALBUTEROL [Concomitant]
     Indication: ASTHMA
     Route: 055

REACTIONS (5)
  - DENTAL PLAQUE [None]
  - DRY SKIN [None]
  - GINGIVITIS [None]
  - STOMATITIS [None]
  - TINEA INFECTION [None]
